FAERS Safety Report 5818524-9 (Version None)
Quarter: 2008Q3

REPORT INFORMATION
  Report Type: 
  Country: None (occurrence: None)
  Receive Date: 20080717
  Receipt Date: 20080711
  Transmission Date: 20090109
  Serious: Yes (Hospitalization)
  Sender: FDA-Public Use
  Company Number: 2008-GWUS-0480

PATIENT
  Age: 80 Year
  Sex: Female
  Weight: 65.7716 kg

DRUGS (3)
  1. ALDARA [Suspect]
     Indication: SKIN CANCER
     Dosage: APPLICATION - TOPICAL
     Route: 061
     Dates: end: 20080601
  2. TOPROL-XL [Concomitant]
  3. RABEPRAZOLE SODIUM (ACIPHEX) [Concomitant]

REACTIONS (8)
  - AMYLOIDOSIS [None]
  - BLOOD ALBUMIN DECREASED [None]
  - LYMPHADENOPATHY [None]
  - MALABSORPTION [None]
  - OEDEMA PERIPHERAL [None]
  - OROPHARYNGEAL PAIN [None]
  - PLEURAL EFFUSION [None]
  - SUBMANDIBULAR MASS [None]
